FAERS Safety Report 4519424-7 (Version None)
Quarter: 2004Q4

REPORT INFORMATION
  Report Type: 
  Country: None (occurrence: None)
  Receive Date: 20041202
  Receipt Date: 20041125
  Transmission Date: 20050328
  Serious: Yes (Hospitalization, Other)
  Sender: FDA-Public Use
  Company Number: 2004091171

PATIENT
  Age: 77 Year
  Sex: Female

DRUGS (6)
  1. LIPITOR [Suspect]
     Indication: HYPERCHOLESTEROLAEMIA
     Dosage: 40 MG (40 MG, 1 IN 1 D), ORAL
     Route: 048
     Dates: start: 19980101, end: 20040914
  2. GEMFIBROZIL [Suspect]
     Indication: HYPERCHOLESTEROLAEMIA
     Dosage: 1200 MG (600 MG, 2 IN 1 D), ORAL
     Route: 048
     Dates: start: 20020101, end: 20040914
  3. EZETIMIBE (EZETIMIBE) [Suspect]
     Indication: HYPERCHOLESTEROLAEMIA
     Dosage: 10 MG (10 MG, 1 IN 1 D), ORAL
     Route: 048
     Dates: start: 20040401, end: 20040914
  4. AMLODIPINE [Concomitant]
  5. ATENOLOL [Concomitant]
  6. DICLOFENAC (DICLOFENAC) [Concomitant]

REACTIONS (4)
  - DRUG INTERACTION [None]
  - INFLUENZA LIKE ILLNESS [None]
  - RENAL FAILURE [None]
  - RHABDOMYOLYSIS [None]
